FAERS Safety Report 6828372-9 (Version None)
Quarter: 2010Q3

REPORT INFORMATION
  Report Type: 
  Country: None (occurrence: None)
  Receive Date: 20100709
  Receipt Date: 20070208
  Transmission Date: 20110219
  Serious: No
  Sender: FDA-Public Use
  Company Number: US-PFIZER INC-2007011329

PATIENT
  Sex: Female
  Weight: 56.7 kg

DRUGS (6)
  1. CHANTIX [Suspect]
  2. HUMALOG [Concomitant]
  3. LANTUS [Concomitant]
  4. CALCIUM CARBONATE [Concomitant]
  5. ACETYLSALICYLIC ACID [Concomitant]
  6. MULTI-VITAMINS [Concomitant]

REACTIONS (1)
  - BLOOD GLUCOSE DECREASED [None]
